FAERS Safety Report 8923085 (Version 4)
Quarter: 2013Q2

REPORT INFORMATION
  Report Type: Spontaneous
  Country: US (occurrence: US)
  Receive Date: 20121123
  Receipt Date: 20130528
  Transmission Date: 20140414
  Serious: Yes (Hospitalization)
  Sender: FDA-Public Use
  Company Number: US-PFIZER INC-2012293025

PATIENT
  Age: 74 Year
  Sex: Male
  Weight: 71 kg

DRUGS (9)
  1. SUTENT [Suspect]
     Indication: METASTATIC RENAL CELL CARCINOMA
     Dosage: 50 MG, UNK
     Dates: start: 20121110, end: 201212
  2. SUTENT [Suspect]
     Dosage: 25 MG, DAILY
     Dates: start: 20130109
  3. SUTENT [Suspect]
     Dosage: 25 MG, 1X/DAY
     Dates: start: 2012, end: 20130521
  4. MOVE FREE [Concomitant]
     Indication: ARTHRITIS
  5. FOLIC ACID [Concomitant]
     Dosage: 800 UG, UNK
  6. MEGARED A FISH OIL [Concomitant]
     Dosage: UNK
  7. BENAZEPRIL [Concomitant]
     Indication: BLOOD PRESSURE ABNORMAL
     Dosage: 20 MG, 1X/DAY
  8. AMLODIPINE [Concomitant]
     Indication: BLOOD PRESSURE ABNORMAL
     Dosage: 10 MG, 1X/DAY
  9. PROTONIX [Concomitant]
     Dosage: UNK

REACTIONS (13)
  - Haematemesis [Unknown]
  - Oesophageal disorder [Recovered/Resolved]
  - Hiccups [Recovered/Resolved]
  - Haemoptysis [Recovered/Resolved]
  - Skin disorder [Recovered/Resolved]
  - Rash [Recovered/Resolved]
  - Gastrooesophageal reflux disease [Recovered/Resolved]
  - Decreased appetite [Recovered/Resolved]
  - Weight decreased [Unknown]
  - Gastrooesophageal reflux disease [Not Recovered/Not Resolved]
  - Lip disorder [Unknown]
  - Disease progression [Unknown]
  - Metastatic renal cell carcinoma [Unknown]
